FAERS Safety Report 25665562 (Version 1)
Quarter: 2025Q3

REPORT INFORMATION
  Report Type: Spontaneous
  Country: US (occurrence: None)
  Receive Date: 20250811
  Receipt Date: 20250811
  Transmission Date: 20251021
  Serious: Yes (Hospitalization)
  Sender: FDA-CTU
  Company Number: None

PATIENT
  Age: 71 Year
  Sex: Male
  Weight: 75.69 kg

DRUGS (10)
  1. JAKAFI [Suspect]
     Active Substance: RUXOLITINIB
     Indication: Graft versus host disease
     Dosage: FREQUENCY : DAILY;?
     Route: 048
     Dates: start: 20250117
  2. CYCLOSPORINE [Suspect]
     Active Substance: CYCLOSPORINE
     Indication: Transplant rejection
     Dosage: FREQUENCY : TWICE A DAY;?
     Route: 048
     Dates: start: 20250520
  3. ATOVAQUONE 750MG/ ML SUSP [Concomitant]
  4. FAMOTIDINE 10MG TABLETS [Concomitant]
  5. MAGNESIUM 250MG TABLETS [Concomitant]
  6. PREDNISONE [Concomitant]
     Active Substance: PREDNISONE
  7. ENTRESTO 15-16MG CAPSULES [Concomitant]
  8. METOPROLOL SUCCINATE [Concomitant]
     Active Substance: METOPROLOL SUCCINATE
  9. POSACONAZOLE 100MG DR  TABS [Concomitant]
  10. URSODIOL 300MG CAPSULES [Concomitant]

REACTIONS (2)
  - Fall [None]
  - Back injury [None]

NARRATIVE: CASE EVENT DATE: 20250801
